FAERS Safety Report 4477215-X (Version None)
Quarter: 2004Q4

REPORT INFORMATION
  Report Type: 
  Country: None (occurrence: None)
  Receive Date: 20041013
  Receipt Date: 20040928
  Transmission Date: 20050328
  Serious: No
  Sender: FDA-Public Use
  Company Number: A04200400909

PATIENT
  Age: 64 Year
  Sex: Male

DRUGS (4)
  1. ELOXATIN [Suspect]
     Indication: COLORECTAL CANCER
     Dosage: 83 MG/M2 OTHER, INTRAVENOUS DRIP
     Route: 041
     Dates: start: 20040101
  2. ELOXATIN [Suspect]
     Indication: METASTASES TO LIVER
     Dosage: 83 MG/M2 OTHER, INTRAVENOUS DRIP
     Route: 041
     Dates: start: 20040101
  3. CALCIUM FOLINAT (FOLINIC ACID) [Concomitant]
  4. FLUOROURACIL [Concomitant]

REACTIONS (7)
  - BODY TEMPERATURE INCREASED [None]
  - FALL [None]
  - HEAD INJURY [None]
  - LACERATION [None]
  - NAUSEA [None]
  - SYNCOPE VASOVAGAL [None]
  - VOMITING [None]
